FAERS Safety Report 4665141-2 (Version None)
Quarter: 2005Q2

REPORT INFORMATION
  Report Type: 
  Country: None (occurrence: None)
  Receive Date: 20050517
  Receipt Date: 20050504
  Transmission Date: 20051028
  Serious: Yes (Other)
  Sender: FDA-Public Use
  Company Number: 2005070397

PATIENT
  Age: 47 Year
  Sex: Male

DRUGS (11)
  1. ZYVOX [Suspect]
     Indication: BACTERIAL INFECTION
     Dosage: 600 MG (2 IN 1 D), INTRAVENOUS
     Route: 042
     Dates: start: 20041017, end: 20041020
  2. PANTOPRAZOLE SODIUM [Suspect]
     Indication: ILL-DEFINED DISORDER
  3. DOXAZOSIN (DOXAZOSIN) [Suspect]
     Indication: ILL-DEFINED DISORDER
     Dosage: ORAL
     Route: 048
  4. ATENOLOL [Suspect]
     Indication: ILL-DEFINED DISORDER
     Dosage: ORAL
     Route: 048
  5. ZOPICLONE (ZOPICLONE) [Suspect]
     Indication: ILL-DEFINED DISORDER
  6. HALOPERIDOL [Suspect]
     Indication: ILL-DEFINED DISORDER
  7. PROCYCLIDINE HYDROCHLORIDE 2MG TAB [Concomitant]
  8. RIFAMPICIN [Concomitant]
  9. FENTANYL [Concomitant]
  10. AMISULPRIDE (AMISULPRIDE) [Concomitant]
  11. OMEPRAZOLE [Concomitant]

REACTIONS (2)
  - BLOOD PRESSURE SYSTOLIC INCREASED [None]
  - DRUG INTERACTION [None]
